FAERS Safety Report 13932923 (Version 1)
Quarter: 2017Q3

REPORT INFORMATION
  Report Type: Spontaneous
  Country: DK (occurrence: DK)
  Receive Date: 20170904
  Receipt Date: 20170904
  Transmission Date: 20171127
  Serious: Yes (Death, Other)
  Sender: FDA-Public Use
  Company Number: DK-PFIZER INC-2017379098

PATIENT
  Age: 52 Year
  Sex: Female
  Weight: 35 kg

DRUGS (1)
  1. ZOLEDRONIC ACID HOSPIRA [Suspect]
     Active Substance: ZOLEDRONIC ACID
     Indication: METASTASES TO BONE
     Dosage: STRENGTH: 4 MG/100ML
     Route: 042
     Dates: start: 20160510, end: 20161215

REACTIONS (2)
  - Death [Fatal]
  - Osteonecrosis of jaw [Not Recovered/Not Resolved]

NARRATIVE: CASE EVENT DATE: 201610
